FAERS Safety Report 12121240 (Version 1)
Quarter: 2016Q1

REPORT INFORMATION
  Report Type: Spontaneous
  Country: US (occurrence: US)
  Receive Date: 20160226
  Receipt Date: 20160226
  Transmission Date: 20160526
  Serious: No
  Sender: FDA-Public Use
  Company Number: US-SUPERNUS PHARMACEUTICALS, INC.-2015SUP00150

PATIENT
  Age: 54 Year
  Sex: Female
  Weight: 96.15 kg

DRUGS (9)
  1. TROKENDI XR [Suspect]
     Active Substance: TOPIRAMATE
     Indication: MIGRAINE
     Dosage: 25 MG, 1X/DAY
     Route: 048
     Dates: start: 20151213, end: 20151221
  2. TURMERIC [Concomitant]
     Active Substance: TURMERIC
  3. VITAMIN D [Concomitant]
     Active Substance: CHOLECALCIFEROL
  4. 5-HTP [Concomitant]
     Active Substance: OXITRIPTAN
     Dosage: UNK
     Dates: end: 201511
  5. MINERALS (UNSPECIFIED) [Concomitant]
  6. PROGESTERONE. [Concomitant]
     Active Substance: PROGESTERONE
     Dosage: UNK
  7. PROBIOTIC (UNSPECIFIED) [Concomitant]
  8. DIGESTIVE ENZYME (UNSPECIFIED) [Concomitant]
  9. ADDERALL [Concomitant]
     Active Substance: AMPHETAMINE ASPARTATE\AMPHETAMINE SULFATE\DEXTROAMPHETAMINE SACCHARATE\DEXTROAMPHETAMINE SULFATE
     Dosage: 2.5 MG, UNK
     Dates: start: 201511, end: 20151231

REACTIONS (17)
  - Off label use [Recovered/Resolved]
  - Fatigue [Not Recovered/Not Resolved]
  - Aggression [Recovered/Resolved]
  - Intraocular pressure increased [Recovered/Resolved]
  - Vision blurred [Not Recovered/Not Resolved]
  - Nightmare [Not Recovered/Not Resolved]
  - Agitation [Recovered/Resolved]
  - Migraine [Recovered/Resolved]
  - Pain [Recovering/Resolving]
  - Feeling abnormal [Unknown]
  - Depression [Recovering/Resolving]
  - Insomnia [Recovering/Resolving]
  - Muscle contractions involuntary [Recovering/Resolving]
  - Anxiety [Unknown]
  - Amnesia [Recovering/Resolving]
  - Nuclear magnetic resonance imaging abnormal [Unknown]
  - Increased appetite [Not Recovered/Not Resolved]

NARRATIVE: CASE EVENT DATE: 2015
